FAERS Safety Report 17723567 (Version 1)
Quarter: 2020Q2

REPORT INFORMATION
  Report Type: Spontaneous
  Country: NL (occurrence: NL)
  Receive Date: 20200429
  Receipt Date: 20200429
  Transmission Date: 20200714
  Serious: Yes (Other)
  Sender: FDA-Public Use
  Company Number: NL-TEVA-2020-NL-1227198

PATIENT
  Age: 68 Year
  Sex: Female
  Weight: 55 kg

DRUGS (10)
  1. LOSARTAN. [Suspect]
     Active Substance: LOSARTAN
     Indication: HYPERTENSION
     Dosage: 100 MILLIGRAM DAILY;  THERAPY END DATE : ASKED BUT UNKNOWN
     Route: 065
     Dates: start: 201808
  2. PARACETAMOL TABLET, 1.000 MG [Concomitant]
     Dosage: ITS 4DD, THERAPY START DATE: ASKED BUT UNKNOWN, THERAPY END DATE : ASKED BUT UNKNOWN, 1000 MG
  3. ACETYLSALICYLZUUR DISPERTABLET, 80 MG, [Concomitant]
     Dosage: 80 MILLIGRAM DAILY; THERAPY START DATE: ASKED BUT UNKNOWN, THERAPY END DATE : ASKED BUT UNKNOWN
  4. METOPROLOLSUCCINAAT TABLET MGA (SELOKEEN), 50 MG, [Concomitant]
     Dosage: 50 MILLIGRAM DAILY; THERAPY START DATE: ASKED BUT UNKNOWN, THERAPY END DATE : ASKED BUT UNKNOWN
  5. AMLODIPINE TABLET, 5 MG, [Concomitant]
     Dosage: 5 MILLIGRAM DAILY; THERAPY START DATE: ASKED BUT UNKNOWN, THERAPY END DATE : ASKED BUT UNKNOWN
  6. NITROGLYCERINE SPRAY SUBLING. 0,4MG/DOSIS, [Concomitant]
     Dosage: IF NECESSARY,1 DOSAGE FORM,THERAPY START DATE: ASKED BUT UNKNOWN,THERAPY END DATE: ASKED BUT UNKNOWN
  7. TEMAZEPAM 20MG [Concomitant]
     Dosage: IF NECESSARY, THERAPY START DATE: ASKED BUT UNKNOWN, THERAPY END DATE : ASKED BUT UNKNOWN, 20 MG
  8. ATORVASTATINE TABLET, 20 MG [Concomitant]
     Dosage: 20 MILLIGRAM DAILY; THERAPY START DATE: ASKED BUT UNKNOWN, THERAPY END DATE : ASKED BUT UNKNOWN
  9. PRAMIPEXOL TABLET (0,088MG BASE), 0,125 MG [Concomitant]
     Dosage: 3DD, THERAPY START DATE: ASKED BUT UNKNOWN, THERAPY END DATE : ASKED BUT UNKNOWN, 0 MG
  10. HYDROCHLOORTHIAZIDE [Concomitant]
     Active Substance: HYDROCHLOROTHIAZIDE
     Dosage: TABLET, 25 MG (MILLIGRAM), THERAPY END DATE: ASKED BUT UNKNOWN
     Dates: start: 20180726

REACTIONS (1)
  - Neutropenia [Not Recovered/Not Resolved]

NARRATIVE: CASE EVENT DATE: 20191104
